FAERS Safety Report 14102627 (Version 1)
Quarter: 2017Q4

REPORT INFORMATION
  Report Type: Spontaneous
  Country: US (occurrence: US)
  Receive Date: 20171018
  Receipt Date: 20171018
  Transmission Date: 20180321
  Serious: No
  Sender: FDA-Public Use
  Company Number: US-BAUSCH-BL-2017-007304

PATIENT
  Age: 46 Year
  Sex: Female

DRUGS (4)
  1. WELLBUTRIN XL [Suspect]
     Active Substance: BUPROPION HYDROCHLORIDE
     Indication: PANIC ATTACK
  2. WELLBUTRIN XL [Suspect]
     Active Substance: BUPROPION HYDROCHLORIDE
     Indication: DEPRESSION
     Route: 048
     Dates: start: 201702
  3. BUPROPION HYDROCHLORIDE. [Suspect]
     Active Substance: BUPROPION HYDROCHLORIDE
     Indication: DEPRESSION
     Route: 065
  4. BUPROPION HYDROCHLORIDE. [Suspect]
     Active Substance: BUPROPION HYDROCHLORIDE
     Indication: PANIC ATTACK

REACTIONS (6)
  - Dizziness [Unknown]
  - Cognitive disorder [Unknown]
  - Drug ineffective [Unknown]
  - Memory impairment [Unknown]
  - Feeling abnormal [Unknown]
  - Weight increased [Unknown]

NARRATIVE: CASE EVENT DATE: 2017
